FAERS Safety Report 8086884 (Version 2)
Quarter: 2013Q1

REPORT INFORMATION
  Report Type: Spontaneous
  Country: US (occurrence: US)
  Receive Date: 20110811
  Receipt Date: 20130318
  Transmission Date: 20140127
  Serious: Yes (Disabling)
  Sender: FDA-Public Use
  Company Number: US-MUTUAL PHARMACEUTICAL COMPANY, INC.-MTCA20110965

PATIENT
  Sex: Female

DRUGS (2)
  1. METOCLOPRAMIDE [Suspect]
     Indication: PRODUCT USED FOR UNKNOWN INDICATION
     Route: 048
     Dates: start: 20031222, end: 20060201
  2. REGLAN [Suspect]
     Indication: PRODUCT USED FOR UNKNOWN INDICATION
     Route: 048
     Dates: start: 20031222, end: 20060201

REACTIONS (8)
  - Restless legs syndrome [None]
  - Neuropathy peripheral [None]
  - Tremor [None]
  - Tardive dyskinesia [None]
  - Condition aggravated [Unknown]
  - Depression [Unknown]
  - Visual impairment [Unknown]
  - Drug interaction [Unknown]
